FAERS Safety Report 8421621-5 (Version None)
Quarter: 2012Q2

REPORT INFORMATION
  Report Type: 
  Country: None (occurrence: None)
  Receive Date: 20120608
  Receipt Date: 20120604
  Transmission Date: 20120825
  Serious: Yes (Death, Hospitalization)
  Sender: FDA-Public Use
  Company Number: AR-UCBSA-056754

PATIENT
  Age: 61 Year
  Sex: Male
  Weight: 83 kg

DRUGS (4)
  1. CIMZIA [Suspect]
     Dosage: NO OF DOSES-39
     Route: 058
     Dates: start: 20110419, end: 20120417
  2. CARBAMAZEPINE [Concomitant]
     Indication: TRIGEMINAL NEURALGIA
     Dates: start: 20000101
  3. GLUCOSAMINE [Concomitant]
     Indication: OSTEOARTHRITIS
     Dates: start: 20100401
  4. MELOXICAM [Concomitant]
     Indication: OSTEOARTHRITIS
     Dates: start: 20100401

REACTIONS (2)
  - PNEUMONIA [None]
  - SEPSIS [None]
